FAERS Safety Report 15711215 (Version 3)
Quarter: 2019Q1

REPORT INFORMATION
  Report Type: Report from Study
  Country: CN (occurrence: CN)
  Receive Date: 20181211
  Receipt Date: 20190110
  Transmission Date: 20190417
  Serious: Yes (Hospitalization)
  Sender: FDA-Public Use
  Company Number: CN-SA-2015SA164567

PATIENT
  Age: 50 Year
  Sex: Male
  Weight: 82 kg

DRUGS (6)
  1. FLUOROURACIL. [Suspect]
     Active Substance: FLUOROURACIL
     Indication: HEPATOCELLULAR CARCINOMA
     Dosage: 3500 MG,QCY
     Route: 042
     Dates: start: 20151009, end: 20151010
  2. OXALIPLATIN. [Suspect]
     Active Substance: OXALIPLATIN
     Dosage: 150 MG,QCY
     Route: 051
     Dates: start: 20151023, end: 20151023
  3. FLUOROURACIL. [Suspect]
     Active Substance: FLUOROURACIL
     Dosage: 4000 MG,QCY
     Route: 042
     Dates: start: 20151023, end: 20151024
  4. CALCIUM FOLINATE [Suspect]
     Active Substance: LEUCOVORIN CALCIUM
     Dosage: 800 MG,QCY
     Dates: start: 20151023, end: 20151024
  5. OXALIPLATIN. [Suspect]
     Active Substance: OXALIPLATIN
     Indication: HEPATOCELLULAR CARCINOMA
     Dosage: 150 MG,QCY
     Route: 051
     Dates: start: 20151009, end: 20151010
  6. CALCIUM FOLINATE [Suspect]
     Active Substance: LEUCOVORIN CALCIUM
     Indication: HEPATOCELLULAR CARCINOMA
     Dosage: 600 MG,QCY
     Dates: start: 20151009, end: 20151010

REACTIONS (2)
  - Tumour pain [Recovered/Resolved]
  - Pyrexia [Recovered/Resolved]

NARRATIVE: CASE EVENT DATE: 20151009
